FAERS Safety Report 19591195 (Version 2)
Quarter: 2021Q3

REPORT INFORMATION
  Report Type: Report from Study
  Country: None (occurrence: DK)
  Receive Date: 20210721
  Receipt Date: 20210914
  Transmission Date: 20211014
  Serious: Yes (Hospitalization)
  Sender: FDA-Public Use
  Company Number: DK-ABBVIE-20P-044-3597525-00

PATIENT
  Age: 57 Year
  Sex: Male
  Weight: 94 kg

DRUGS (18)
  1. CYCLOPHOSPHAMIDE. [Concomitant]
     Active Substance: CYCLOPHOSPHAMIDE
     Indication: MANTLE CELL LYMPHOMA
     Route: 065
     Dates: start: 20180827, end: 20181214
  2. DEXAMETHASONE. [Concomitant]
     Active Substance: DEXAMETHASONE
     Indication: MANTLE CELL LYMPHOMA
     Route: 065
     Dates: start: 20180827, end: 20181214
  3. CYTARABINE. [Concomitant]
     Active Substance: CYTARABINE
     Indication: MANTLE CELL LYMPHOMA
     Route: 065
     Dates: start: 20180827, end: 20181214
  4. CISPLATIN. [Concomitant]
     Active Substance: CISPLATIN
     Indication: MANTLE CELL LYMPHOMA
     Route: 065
     Dates: start: 20180827, end: 20181214
  5. OXALIPLATIN. [Concomitant]
     Active Substance: OXALIPLATIN
     Indication: MANTLE CELL LYMPHOMA
     Route: 065
     Dates: start: 20180827, end: 20181214
  6. FUSIDINE [Concomitant]
     Active Substance: FUSIDIC ACID
     Indication: ECZEMA
     Route: 065
     Dates: start: 20201026
  7. VIAGRA [Concomitant]
     Active Substance: SILDENAFIL CITRATE
     Indication: ERECTILE DYSFUNCTION
     Route: 065
     Dates: start: 20201026
  8. RITUXIMAB. [Concomitant]
     Active Substance: RITUXIMAB
     Indication: MANTLE CELL LYMPHOMA
     Route: 065
     Dates: start: 20180827, end: 20181214
  9. DOXORUBICIN [Concomitant]
     Active Substance: DOXORUBICIN
     Indication: MANTLE CELL LYMPHOMA
     Route: 065
     Dates: start: 20180827, end: 20181214
  10. PREDNISONE. [Concomitant]
     Active Substance: PREDNISONE
     Indication: MANTLE CELL LYMPHOMA
     Route: 065
     Dates: start: 20180827, end: 20181214
  11. HYDROCORTISONE/MICONAZOLE [Concomitant]
     Indication: HERPES ZOSTER
     Route: 065
     Dates: start: 20200706
  12. MABLET [Concomitant]
     Indication: HYPOMAGNESAEMIA
     Route: 065
     Dates: start: 20201001
  13. VINCRISTINE [Concomitant]
     Active Substance: VINCRISTINE
     Indication: MANTLE CELL LYMPHOMA
     Route: 065
     Dates: start: 20180827, end: 20181214
  14. VALACICLOVIR [Concomitant]
     Active Substance: VALACYCLOVIR HYDROCHLORIDE
     Indication: HERPES ZOSTER
     Route: 065
     Dates: start: 20200831
  15. VIAGRA [Concomitant]
     Active Substance: SILDENAFIL CITRATE
     Indication: ERECTILE DYSFUNCTION
     Route: 065
     Dates: start: 20201026
  16. GABAPENTIN. [Concomitant]
     Active Substance: GABAPENTIN
     Indication: HERPES ZOSTER
     Route: 065
     Dates: start: 20200915
  17. PARACETAMOL [Concomitant]
     Active Substance: ACETAMINOPHEN
     Indication: HERPES ZOSTER
     Route: 065
     Dates: start: 20200929
  18. IBRUTINIB [Suspect]
     Active Substance: IBRUTINIB
     Indication: MANTLE CELL LYMPHOMA
     Route: 048
     Dates: start: 20180827

REACTIONS (2)
  - Skin infection [Recovered/Resolved]
  - Erysipelas [Recovered/Resolved]

NARRATIVE: CASE EVENT DATE: 20200929
